FAERS Safety Report 12827883 (Version 1)
Quarter: 2016Q4

REPORT INFORMATION
  Report Type: Report from Study
  Country: CA (occurrence: CA)
  Receive Date: 20161007
  Receipt Date: 20161007
  Transmission Date: 20170207
  Serious: Yes (Hospitalization)
  Sender: FDA-Public Use
  Company Number: CA-UCBSA-077510

PATIENT
  Age: 53 Year
  Sex: Female
  Weight: 52 kg

DRUGS (9)
  1. VALTREX [Concomitant]
     Active Substance: VALACYCLOVIR HYDROCHLORIDE
     Indication: RHEUMATOID ARTHRITIS
     Dosage: 500 MG, ONCE DAILY (QD)
     Route: 048
     Dates: start: 2007
  2. OXYCODONE [Concomitant]
     Active Substance: OXYCODONE
     Indication: RHEUMATOID ARTHRITIS
     Dosage: DOSE PER INTAKE: 15-30 MG
     Route: 048
     Dates: start: 2011
  3. CERTOLIZUMAB PEGOL RA [Suspect]
     Active Substance: CERTOLIZUMAB PEGOL
     Indication: RHEUMATOID ARTHRITIS
     Dosage: 400 MG, EV 2 WEEKS(QOW)
     Route: 058
     Dates: start: 20110615, end: 20110713
  4. CYMBALTA [Concomitant]
     Active Substance: DULOXETINE HYDROCHLORIDE
     Indication: RHEUMATOID ARTHRITIS
     Dosage: 30 MG, 2X/DAY (BID)
     Route: 048
     Dates: start: 201204
  5. METHOTREXATE. [Concomitant]
     Active Substance: METHOTREXATE
     Indication: RHEUMATOID ARTHRITIS
     Dosage: 25 MG, MONTHLY (QM)
     Route: 058
  6. FOLIC ACID. [Concomitant]
     Active Substance: FOLIC ACID
     Indication: RHEUMATOID ARTHRITIS
     Dosage: 5 MG, ONCE DAILY (QD)
     Route: 048
     Dates: start: 2007
  7. CERTOLIZUMAB PEGOL RA [Suspect]
     Active Substance: CERTOLIZUMAB PEGOL
     Dosage: 200 MG, EV 2 WEEKS(QOW)
     Route: 058
     Dates: start: 20110727, end: 20121024
  8. CERTOLIZUMAB PEGOL RA [Suspect]
     Active Substance: CERTOLIZUMAB PEGOL
     Dosage: 200 MG, EV 2 WEEKS(QOW)
     Route: 058
     Dates: start: 20120727
  9. TYLENOL WITH CODEINE [Concomitant]
     Active Substance: ACETAMINOPHEN\CODEINE PHOSPHATE
     Indication: RHEUMATOID ARTHRITIS
     Dosage: DOSE PER INTAKE:  1-2 TABLET
     Route: 048
     Dates: start: 2007

REACTIONS (2)
  - Impaired healing [Recovered/Resolved]
  - Surgery [Unknown]

NARRATIVE: CASE EVENT DATE: 201210
